FAERS Safety Report 7822138-9 (Version None)
Quarter: 2011Q4

REPORT INFORMATION
  Report Type: 
  Country: None (occurrence: None)
  Receive Date: 20111018
  Receipt Date: 20110411
  Transmission Date: 20120403
  Serious: No
  Sender: FDA-Public Use
  Company Number: US-ASTRAZENECA-2011SE21029

PATIENT
  Age: 57 Year
  Sex: Female

DRUGS (3)
  1. NEXIUM [Suspect]
     Route: 048
  2. RHINOCORT [Suspect]
     Route: 045
  3. SYMBICORT [Suspect]
     Route: 055

REACTIONS (1)
  - ROAD TRAFFIC ACCIDENT [None]
